FAERS Safety Report 10168140 (Version 1)
Quarter: 2014Q2

REPORT INFORMATION
  Report Type: Spontaneous
  Country: IT (occurrence: IT)
  Receive Date: 20140512
  Receipt Date: 20140512
  Transmission Date: 20141212
  Serious: Yes (Other)
  Sender: FDA-Public Use
  Company Number: IT-MYLANLABS-2014S1010268

PATIENT
  Age: 73 Year
  Sex: Male

DRUGS (2)
  1. RAMIPRIL [Suspect]
     Indication: HYPERTENSION
     Dosage: 5 MG DAILY
     Route: 048
     Dates: start: 20140408, end: 20140411
  2. DOXAZOSIN MESILATE [Suspect]
     Indication: HYPERTENSION
     Dosage: 2 MG DAILY
     Route: 048
     Dates: start: 20140408, end: 20140411

REACTIONS (1)
  - Angioedema [Recovering/Resolving]
